FAERS Safety Report 21723064 (Version 8)
Quarter: 2023Q2

REPORT INFORMATION
  Report Type: Spontaneous
  Country: US (occurrence: US)
  Receive Date: 20221213
  Receipt Date: 20230626
  Transmission Date: 20230722
  Serious: No
  Sender: FDA-Public Use
  Company Number: US-PFIZER INC-202101013293

PATIENT
  Age: 80 Year
  Sex: Female

DRUGS (5)
  1. RETACRIT [Suspect]
     Active Substance: EPOETIN ALFA-EPBX
     Dosage: 40000 IU
  2. RETACRIT [Suspect]
     Active Substance: EPOETIN ALFA-EPBX
     Dosage: 40,000 UNIT VIAL- INJECT 60000 UNITS EVERY 7 DAY(S) FOR HGB {11
     Route: 058
  3. RETACRIT [Suspect]
     Active Substance: EPOETIN ALFA-EPBX
     Dosage: 10,000 UNIT VIAL- INJECT 60000 UNITS EVERY 7 DAY(S) FOR HGB {11
     Route: 058
  4. RETACRIT [Suspect]
     Active Substance: EPOETIN ALFA-EPBX
     Dosage: 10,000/40,000U/ML
  5. RETACRIT [Suspect]
     Active Substance: EPOETIN ALFA-EPBX
     Dosage: EVERY 7 DAYS FOR HGB LESS THAN 11

REACTIONS (3)
  - Anaemia [Unknown]
  - Product prescribing error [Unknown]
  - Product dose omission issue [Unknown]

NARRATIVE: CASE EVENT DATE: 20220701
